FAERS Safety Report 9661356 (Version 2)
Quarter: 2014Q1

REPORT INFORMATION
  Report Type: Spontaneous
  Country: JP (occurrence: JP)
  Receive Date: 20131031
  Receipt Date: 20140106
  Transmission Date: 20141002
  Serious: Yes (Other)
  Sender: FDA-Public Use
  Company Number: PHHY2013JP119235

PATIENT
  Age: 60 Year
  Sex: Female

DRUGS (18)
  1. CICLOSPORIN [Suspect]
     Indication: POLYARTERITIS NODOSA
     Dosage: 100 MG, DAY
  2. PREDNISOLONE [Suspect]
     Indication: POLYARTERITIS NODOSA
     Dosage: 5 MG, PER DAY
  3. PREDNISOLONE [Suspect]
     Dosage: 15 MG, PER DAY
  4. PREDNISOLONE [Suspect]
     Dosage: 50 MG, PER DAY
  5. PREDNISOLONE [Suspect]
     Dosage: 8 MG, PER DAY
  6. PREDNISOLONE [Suspect]
     Dosage: 15 MG, PER DAY
  7. PREDNISOLONE [Suspect]
     Dosage: 9 MG PER DAY
  8. PREDNISOLONE [Suspect]
     Dosage: 5 MG PER DAY
  9. METHYLPREDNISOLONE [Suspect]
     Dosage: 500 MG, PER DAY
  10. METHOTREXATE [Suspect]
     Indication: POLYARTERITIS NODOSA
     Dosage: 6 MG, PER WEEK
  11. TACROLIMUS [Suspect]
     Indication: POLYARTERITIS NODOSA
     Dosage: 2 MG, DAILY
  12. AZATHIOPRINE [Suspect]
     Indication: POLYARTERITIS NODOSA
     Dosage: 100 MG, DAILY
  13. COLCHICINE [Suspect]
     Indication: POLYARTERITIS NODOSA
     Dosage: 1.5 MG, DAILY
  14. CYCLOPHOSPHAMIDE [Suspect]
     Indication: POLYARTERITIS NODOSA
     Dosage: 15 MG/KG, 750MG
     Route: 042
  15. ADEFOVIR [Concomitant]
     Indication: HEPATITIS B
  16. LAMIVUDINE [Concomitant]
     Dosage: 100 MG, PER DAY
  17. MINOCYCLINE [Concomitant]
  18. RISEDRONATE [Concomitant]

REACTIONS (9)
  - Spinal compression fracture [Unknown]
  - Polyarteritis nodosa [Unknown]
  - Purpura [Recovered/Resolved]
  - C-reactive protein increased [Recovered/Resolved]
  - Myalgia [Recovered/Resolved]
  - Vasculitis [Recovered/Resolved]
  - Skin mass [Recovered/Resolved]
  - Pain [Recovered/Resolved]
  - Drug ineffective [Unknown]
